FAERS Safety Report 6124398-1 (Version None)
Quarter: 2009Q1

REPORT INFORMATION
  Report Type: 
  Country: None (occurrence: None)
  Receive Date: 20090319
  Receipt Date: 20090309
  Transmission Date: 20090719
  Serious: Yes (Hospitalization, Disabling, Other)
  Sender: FDA-Public Use
  Company Number: US-ELI_LILLY_AND_COMPANY-US200902000558

PATIENT
  Sex: Female

DRUGS (7)
  1. EVISTA [Suspect]
     Indication: OSTEOPOROSIS
     Dosage: 60 MG, DAILY (1/D)
     Route: 065
  2. PREMARIN [Concomitant]
     Dosage: 2 G, 2/W
     Route: 067
  3. PREMARIN [Concomitant]
     Dosage: 1.5 G, 2/W
     Route: 067
  4. CALCIUM CARBONATE [Concomitant]
     Dosage: 5 MG, 2/D
     Route: 065
  5. VITAMIN E [Concomitant]
     Dosage: 400 IU, DAILY (1/D)
     Route: 065
  6. TYLENOL (CAPLET) [Concomitant]
     Indication: BACK PAIN
     Dosage: UNK, 3/D
     Route: 065
  7. ULTRACET [Concomitant]
     Indication: PAIN
     Dosage: UNK, AS NEEDED
     Route: 065

REACTIONS (25)
  - ABASIA [None]
  - ATELECTASIS [None]
  - BLOOD PRESSURE INCREASED [None]
  - CHOLELITHIASIS [None]
  - COLON ADENOMA [None]
  - DEEP VEIN THROMBOSIS [None]
  - DIARRHOEA [None]
  - DIVERTICULUM [None]
  - FALL [None]
  - GASTROINTESTINAL TRACT ADENOMA [None]
  - GLAUCOMA [None]
  - INJURY [None]
  - JOINT INJURY [None]
  - LIMB INJURY [None]
  - LUMBAR SPINAL STENOSIS [None]
  - MUSCLE SPASMS [None]
  - MUSCLE SPASTICITY [None]
  - MYELOPATHY [None]
  - NOCTURIA [None]
  - OSTEOARTHRITIS [None]
  - OVARIAN NEOPLASM [None]
  - POLYP [None]
  - SMALL INTESTINAL OBSTRUCTION [None]
  - URINARY TRACT INFECTION [None]
  - WHEELCHAIR USER [None]
